FAERS Safety Report 13264521 (Version 1)
Quarter: 2017Q1

REPORT INFORMATION
  Report Type: Spontaneous
  Country: US (occurrence: US)
  Receive Date: 20170223
  Receipt Date: 20170223
  Transmission Date: 20170428
  Serious: No
  Sender: FDA-Public Use
  Company Number: US-LANTHEUS-LMI-2016-04179

PATIENT
  Sex: Female

DRUGS (2)
  1. DEFINITY [Suspect]
     Active Substance: PERFLUTREN
     Indication: STRESS ECHOCARDIOGRAM
     Dosage: 1 ML (1.5 ML DEFINITY PREPARED IN 8.5 ML NORMAL SALINE)
     Route: 040
     Dates: start: 20161205, end: 20161205
  2. DOBUTAMINE [Suspect]
     Active Substance: DOBUTAMINE\DOBUTAMINE HYDROCHLORIDE
     Indication: STRESS ECHOCARDIOGRAM
     Dosage: UNK
     Route: 065
     Dates: start: 20161205

REACTIONS (2)
  - Back pain [Recovered/Resolved]
  - Neck pain [Recovered/Resolved]

NARRATIVE: CASE EVENT DATE: 20161205
